FAERS Safety Report 13432042 (Version 1)
Quarter: 2017Q2

REPORT INFORMATION
  Report Type: Spontaneous
  Country: US (occurrence: US)
  Receive Date: 20170412
  Receipt Date: 20170412
  Transmission Date: 20170830
  Serious: No
  Sender: FDA-Public Use
  Company Number: US-ASTRAZENECA-2017SE27370

PATIENT

DRUGS (1)
  1. NEXIUM [Suspect]
     Active Substance: ESOMEPRAZOLE MAGNESIUM
     Indication: DYSPEPSIA
     Dosage: 2 DOSAGE FORM, UNKNOWN FREQUENCY
     Route: 048

REACTIONS (2)
  - Intentional product misuse [Unknown]
  - Dyspepsia [Unknown]

NARRATIVE: CASE EVENT DATE: 20170403
